FAERS Safety Report 8291732-6 (Version None)
Quarter: 2012Q2

REPORT INFORMATION
  Report Type: 
  Country: None (occurrence: None)
  Receive Date: 20120417
  Receipt Date: 20110525
  Transmission Date: 20120825
  Serious: No
  Sender: FDA-Public Use
  Company Number: US-ASTRAZENECA-2010SE45405

PATIENT
  Age: 82 Year
  Sex: Female
  Weight: 56.7 kg

DRUGS (1)
  1. NEXIUM [Suspect]
     Route: 048

REACTIONS (4)
  - ABDOMINAL PAIN UPPER [None]
  - EATING DISORDER [None]
  - DYSPEPSIA [None]
  - WEIGHT DECREASED [None]
